FAERS Safety Report 7018067-3 (Version None)
Quarter: 2010Q3

REPORT INFORMATION
  Report Type: 
  Country: None (occurrence: None)
  Receive Date: 20100928
  Receipt Date: 20100921
  Transmission Date: 20110219
  Serious: Yes (Other)
  Sender: FDA-Public Use
  Company Number: PHFR2010GB01704

PATIENT
  Sex: Female

DRUGS (1)
  1. CLOZARIL [Suspect]
     Indication: SCHIZOPHRENIA
     Dosage: 250 MG, QD
     Route: 048
     Dates: start: 20041014, end: 20100901

REACTIONS (3)
  - CARDIAC DISORDER [None]
  - CARDIOMYOPATHY [None]
  - ELECTROCARDIOGRAM ABNORMAL [None]
